FAERS Safety Report 5384485-2 (Version None)
Quarter: 2007Q3

REPORT INFORMATION
  Report Type: 
  Country: None (occurrence: None)
  Receive Date: 20070711
  Receipt Date: 20070709
  Transmission Date: 20080115
  Serious: Yes (Hospitalization, Other)
  Sender: FDA-Public Use
  Company Number: GB-BRISTOL-MYERS SQUIBB COMPANY-13737929

PATIENT
  Age: 70 Year
  Sex: Male

DRUGS (2)
  1. PRAVASTATIN [Suspect]
     Indication: BLOOD CHOLESTEROL INCREASED
     Route: 048
     Dates: start: 20000101, end: 20061029
  2. RABEPRAZOLE SODIUM [Concomitant]

REACTIONS (2)
  - PAIN IN EXTREMITY [None]
  - RENAL FAILURE ACUTE [None]
